FAERS Safety Report 21131371 (Version 1)
Quarter: 2022Q3

REPORT INFORMATION
  Report Type: Spontaneous
  Country: ES (occurrence: ES)
  Receive Date: 20220726
  Receipt Date: 20220726
  Transmission Date: 20221027
  Serious: Yes (Hospitalization)
  Sender: FDA-Public Use
  Company Number: None

PATIENT
  Age: 90 Year
  Sex: Male

DRUGS (6)
  1. FUROSEMIDE [Suspect]
     Active Substance: FUROSEMIDE
     Indication: Cardiac failure
     Dosage: 20.0 MG EVERY 24 HOURS
     Dates: start: 20210226, end: 20210302
  2. ALPRAZOLAM [Concomitant]
     Active Substance: ALPRAZOLAM
     Indication: Anxiety
     Dosage: 0.25 MG TABLETS EFG, 30 TABLETS, 0.25 MG EVERY 12 HOURS
     Dates: start: 20170318
  3. OMEPRAZOLE [Concomitant]
     Active Substance: OMEPRAZOLE
     Indication: Dyspepsia
     Dosage: STRENGTH 20 MG, HARD GASTRO-RESISTANT CAPSULES EFG, 56 CAPSULES, 20.0 MG EVERY 12 HOURS
     Dates: start: 20170318
  4. ACETAMINOPHEN [Concomitant]
     Active Substance: ACETAMINOPHEN
     Indication: Urinary incontinence
     Dosage: 1.0G EVERY 24H,  1 G TABLETS EFG, 40 TABLETS
     Dates: start: 20181206
  5. FERPLEX [Concomitant]
     Indication: Anaemia
     Dosage: 40 MG ORAL SOLUTION, 20 ORAL SOLUTION VIALS OF 15 ML, 800.0 MG AT BREAKFAST AND DINNER
     Dates: start: 20181219
  6. CHOLECALCIFEROL [Concomitant]
     Active Substance: CHOLECALCIFEROL
     Indication: Anaemia
     Dosage: 25,000 IU/2.5 ML ORAL SOLUTION, 4 VIALS OF 2.5 ML, 50000.0 IU EVERY 15 DAYS
     Dates: start: 20181220

REACTIONS (1)
  - Acute kidney injury [Recovered/Resolved]

NARRATIVE: CASE EVENT DATE: 20210302
